FAERS Safety Report 13424412 (Version 1)
Quarter: 2017Q2

REPORT INFORMATION
  Report Type: Spontaneous
  Country: US (occurrence: US)
  Receive Date: 20170410
  Receipt Date: 20170410
  Transmission Date: 20170830
  Serious: No
  Sender: FDA-Public Use
  Company Number: US-BAYER-2017-068103

PATIENT
  Age: 29 Year
  Sex: Female
  Weight: 58 kg

DRUGS (2)
  1. MIRALAX [Suspect]
     Active Substance: POLYETHYLENE GLYCOL 3350
     Indication: GASTROINTESTINAL DISORDER
     Dosage: 1 CAPFUL IN 8OZ GINGERALE DOSE
     Route: 048
     Dates: start: 20170406, end: 20170407
  2. PROBIOTICA [Concomitant]
     Active Substance: PROBIOTICS NOS

REACTIONS (4)
  - Diarrhoea [Unknown]
  - Bowel movement irregularity [Unknown]
  - Defaecation urgency [Unknown]
  - Bowel movement irregularity [None]

NARRATIVE: CASE EVENT DATE: 20170406
